FAERS Safety Report 7563234-3 (Version None)
Quarter: 2011Q2

REPORT INFORMATION
  Report Type: 
  Country: None (occurrence: None)
  Receive Date: 20110615
  Receipt Date: 20110609
  Transmission Date: 20111010
  Serious: Yes (Hospitalization, Disabling, Other)
  Sender: FDA-Public Use
  Company Number: 2010SP017471

PATIENT
  Age: 42 Year
  Sex: Female
  Weight: 72.5755 kg

DRUGS (6)
  1. NUVARING [Suspect]
     Indication: CONTRACEPTION
     Dates: start: 20070101, end: 20090101
  2. LOTENSIN [Concomitant]
  3. HYDROCHLOROTHIAZIDE [Concomitant]
  4. ALBUTEROL SULFATE AUTOHALER [Concomitant]
  5. ASPIRIN [Concomitant]
  6. MOTRIN [Concomitant]

REACTIONS (20)
  - PULMONARY EMBOLISM [None]
  - ASTIGMATISM [None]
  - HYPERTENSION [None]
  - TACHYCARDIA [None]
  - ASTHMA [None]
  - PRESBYOPIA [None]
  - HEART RATE IRREGULAR [None]
  - BRONCHITIS [None]
  - ATRIAL FIBRILLATION [None]
  - SEBORRHOEIC DERMATITIS [None]
  - MIGRAINE [None]
  - OTITIS MEDIA [None]
  - CAROTID ARTERY STENOSIS [None]
  - CEREBROVASCULAR ACCIDENT [None]
  - ARRHYTHMIA [None]
  - PALPITATIONS [None]
  - BRADYCARDIA [None]
  - MITRAL VALVE INCOMPETENCE [None]
  - MENORRHAGIA [None]
  - DERMAL CYST [None]
